FAERS Safety Report 4898789-0 (Version None)
Quarter: 2006Q1

REPORT INFORMATION
  Report Type: 
  Country: None (occurrence: None)
  Receive Date: 20060127
  Receipt Date: 20060116
  Transmission Date: 20060701
  Serious: Yes (Hospitalization)
  Sender: FDA-Public Use
  Company Number: EM2006-0029

PATIENT
  Age: 55 Year
  Sex: Male

DRUGS (2)
  1. PROLEUKIN [Suspect]
     Indication: RENAL CELL CARCINOMA STAGE UNSPECIFIED
     Dosage: SEE IMAGE
     Dates: start: 20051227
  2. PROLEUKIN [Suspect]

REACTIONS (3)
  - ATRIAL FIBRILLATION [None]
  - THERAPY NON-RESPONDER [None]
  - TRICUSPID VALVE INCOMPETENCE [None]
